FAERS Safety Report 7505377-6 (Version None)
Quarter: 2011Q2

REPORT INFORMATION
  Report Type: 
  Country: None (occurrence: None)
  Receive Date: 20110526
  Receipt Date: 20110516
  Transmission Date: 20111010
  Serious: Yes (Other)
  Sender: FDA-Public Use
  Company Number: FR-JNJFOC-20110508727

PATIENT
  Sex: Male

DRUGS (3)
  1. PREDNISOLONE [Suspect]
     Indication: PROSTATE CANCER
     Route: 048
     Dates: end: 20110515
  2. ABIRATERONE [Suspect]
     Indication: PROSTATE CANCER
     Route: 048
     Dates: end: 20110515
  3. ABIRATERONE [Suspect]
     Route: 048

REACTIONS (1)
  - NEUTROPENIA [None]
